FAERS Safety Report 20739961 (Version 2)
Quarter: 2022Q2

REPORT INFORMATION
  Report Type: Spontaneous
  Country: US (occurrence: US)
  Receive Date: 20220422
  Receipt Date: 20220607
  Transmission Date: 20220720
  Serious: No
  Sender: FDA-Public Use
  Company Number: US-ORGANON-O2204USA001319

PATIENT
  Age: 17 Year
  Sex: Female
  Weight: 142 kg

DRUGS (2)
  1. NEXPLANON [Suspect]
     Active Substance: ETONOGESTREL
     Dosage: 1 IMPLANT OF 68 MILLIGRAM IN LEFT UPPER ARM
     Route: 059
     Dates: start: 20220321, end: 20220325
  2. NEXPLANON [Suspect]
     Active Substance: ETONOGESTREL
     Indication: Contraception
     Dosage: 1 IMPLANT OF 68 MILLIGRAM
     Route: 059
     Dates: end: 20220321

REACTIONS (9)
  - Complication of device insertion [Recovered/Resolved]
  - Product quality issue [Unknown]
  - Device placement issue [Recovered/Resolved]
  - Implant site scar [Unknown]
  - Implant site fibrosis [Unknown]
  - Feeling abnormal [Unknown]
  - Device kink [Recovered/Resolved]
  - Implant site pain [Unknown]
  - Implant site bruising [Unknown]

NARRATIVE: CASE EVENT DATE: 20220301
